FAERS Safety Report 21770823 (Version 1)
Quarter: 2022Q4

REPORT INFORMATION
  Report Type: Spontaneous
  Country: US (occurrence: US)
  Receive Date: 20221223
  Receipt Date: 20221223
  Transmission Date: 20230113
  Serious: No
  Sender: FDA-Public Use
  Company Number: US-JNJFOC-20221233316

PATIENT
  Age: 73 Year
  Sex: Female

DRUGS (2)
  1. IBRUTINIB [Suspect]
     Active Substance: IBRUTINIB
     Indication: Richter^s syndrome
     Route: 048
  2. VENETOCLAX [Suspect]
     Active Substance: VENETOCLAX
     Indication: Richter^s syndrome
     Route: 065

REACTIONS (5)
  - Lymphadenopathy [Unknown]
  - Splenomegaly [Unknown]
  - Off label use [Unknown]
  - Ill-defined disorder [Unknown]
  - Lymphadenopathy [Unknown]
